FAERS Safety Report 10617162 (Version 3)
Quarter: 2014Q4

REPORT INFORMATION
  Report Type: Spontaneous
  Country: US (occurrence: US)
  Receive Date: 20141201
  Receipt Date: 20141231
  Transmission Date: 20150529
  Serious: Yes (Hospitalization, Disabling, Other)
  Sender: FDA-Public Use
  Company Number: US-009507513-1201USA03324

PATIENT
  Sex: Male
  Weight: 110.2 kg

DRUGS (5)
  1. PROSCAR [Suspect]
     Active Substance: FINASTERIDE
     Indication: BENIGN PROSTATIC HYPERPLASIA
     Dosage: 5 MG, UNK
     Route: 048
     Dates: start: 1998, end: 2005
  2. RITALIN [Concomitant]
     Active Substance: METHYLPHENIDATE HYDROCHLORIDE
     Indication: ATTENTION DEFICIT/HYPERACTIVITY DISORDER
     Dosage: UNK
     Dates: start: 1997, end: 2005
  3. PROSCAR [Suspect]
     Active Substance: FINASTERIDE
     Dosage: 5 MG, UNK
     Route: 048
     Dates: start: 2009, end: 201105
  4. FINASTERIDE. [Suspect]
     Active Substance: FINASTERIDE
     Indication: BENIGN PROSTATIC HYPERPLASIA
     Dosage: 5 MG, UNK
     Route: 048
     Dates: start: 20070907, end: 20091009
  5. METHYLPHENIDATE [Concomitant]
     Active Substance: METHYLPHENIDATE
     Indication: ATTENTION DEFICIT/HYPERACTIVITY DISORDER
     Dosage: UNK
     Dates: start: 1997, end: 2005

REACTIONS (20)
  - Cholecystectomy [Unknown]
  - Surgery [Unknown]
  - Anxiety [Unknown]
  - Arthralgia [Unknown]
  - Nocturia [Recovered/Resolved]
  - Depression [Unknown]
  - Sexual dysfunction [Not Recovered/Not Resolved]
  - Erectile dysfunction [Recovering/Resolving]
  - Cognitive disorder [Not Recovered/Not Resolved]
  - Pollakiuria [Recovered/Resolved]
  - Urine flow decreased [Unknown]
  - Hypogonadism male [Unknown]
  - Loss of libido [Recovering/Resolving]
  - Stress urinary incontinence [Unknown]
  - Back injury [Not Recovered/Not Resolved]
  - Laser therapy [Unknown]
  - Prostatic operation [Unknown]
  - Drug ineffective [Unknown]
  - Headache [Unknown]
  - Erectile dysfunction [Recovering/Resolving]

NARRATIVE: CASE EVENT DATE: 2001
